FAERS Safety Report 21438419 (Version 1)
Quarter: 2022Q4

REPORT INFORMATION
  Report Type: Report from Study
  Country: US (occurrence: US)
  Receive Date: 20221011
  Receipt Date: 20221011
  Transmission Date: 20230112
  Serious: Yes (Hospitalization)
  Sender: FDA-Public Use
  Company Number: US-TAKEDA-US202014666

PATIENT
  Age: 11 Year
  Sex: Male

DRUGS (8)
  1. TEDUGLUTIDE [Suspect]
     Active Substance: TEDUGLUTIDE
     Indication: Short-bowel syndrome
     Dosage: 1.25 MILLIGRAM, QD
     Route: 058
     Dates: start: 20200401
  2. TEDUGLUTIDE [Suspect]
     Active Substance: TEDUGLUTIDE
     Indication: Short-bowel syndrome
     Dosage: 1.25 MILLIGRAM, QD
     Route: 058
     Dates: start: 20200401
  3. TEDUGLUTIDE [Suspect]
     Active Substance: TEDUGLUTIDE
     Indication: Short-bowel syndrome
     Dosage: 1.25 MILLIGRAM, QD
     Route: 058
     Dates: start: 20200401
  4. TEDUGLUTIDE [Suspect]
     Active Substance: TEDUGLUTIDE
     Indication: Short-bowel syndrome
     Dosage: 1.25 MILLIGRAM, QD
     Route: 058
     Dates: start: 20200401
  5. TEDUGLUTIDE [Suspect]
     Active Substance: TEDUGLUTIDE
     Dosage: 1.51 MILLIGRAM, QD
     Route: 058
     Dates: start: 202004
  6. TEDUGLUTIDE [Suspect]
     Active Substance: TEDUGLUTIDE
     Dosage: 1.51 MILLIGRAM, QD
     Route: 058
     Dates: start: 202004
  7. TEDUGLUTIDE [Suspect]
     Active Substance: TEDUGLUTIDE
     Dosage: 1.51 MILLIGRAM, QD
     Route: 058
     Dates: start: 202004
  8. TEDUGLUTIDE [Suspect]
     Active Substance: TEDUGLUTIDE
     Dosage: 1.51 MILLIGRAM, QD
     Route: 058
     Dates: start: 202004

REACTIONS (3)
  - Pyrexia [Unknown]
  - Product availability issue [Unknown]
  - Therapy interrupted [Unknown]

NARRATIVE: CASE EVENT DATE: 20200410
